FAERS Safety Report 23084034 (Version 1)
Quarter: 2023Q4

REPORT INFORMATION
  Report Type: Spontaneous
  Country: US (occurrence: US)
  Receive Date: 20231019
  Receipt Date: 20231019
  Transmission Date: 20240110
  Serious: No
  Sender: FDA-Public Use
  Company Number: US-PFIZER INC-202300331104

PATIENT
  Age: 21 Year
  Sex: Female

DRUGS (1)
  1. EUCRISA [Suspect]
     Active Substance: CRISABOROLE
     Dosage: UNK UNK, 2X/DAY APPLICATION(S) TOPICAL 2(TWO) TIMES A DAY TO AFFECTED AREAS FOR 30 DAYS
     Route: 061

REACTIONS (1)
  - Eczema [Unknown]
